FAERS Safety Report 8074427-3 (Version None)
Quarter: 2012Q1

REPORT INFORMATION
  Report Type: 
  Country: None (occurrence: None)
  Receive Date: 20120126
  Receipt Date: 20120118
  Transmission Date: 20120608
  Serious: Yes (Congenital Anomaly)
  Sender: FDA-Public Use
  Company Number: DK-GLAXOSMITHKLINE-B0776892A

PATIENT
  Sex: Female

DRUGS (1)
  1. ONDANSETRON HCL [Suspect]
     Indication: HYPEREMESIS GRAVIDARUM
     Dosage: 1TAB AS REQUIRED
     Route: 048
     Dates: start: 20110901

REACTIONS (2)
  - FOETAL DEATH [None]
  - MATERNAL EXPOSURE DURING PREGNANCY [None]
